FAERS Safety Report 7255940-5 (Version None)
Quarter: 2011Q1

REPORT INFORMATION
  Report Type: 
  Country: None (occurrence: None)
  Receive Date: 20110129
  Receipt Date: 20100518
  Transmission Date: 20110831
  Serious: No
  Sender: FDA-Public Use
  Company Number: US-ABBOTT-10P-163-0645676-00

PATIENT
  Sex: Female
  Weight: 99.88 kg

DRUGS (2)
  1. HUMIRA [Suspect]
     Indication: PSORIATIC ARTHROPATHY
  2. HUMIRA [Suspect]
     Indication: PSORIASIS
     Dosage: DAY 8
     Dates: start: 20100507

REACTIONS (3)
  - PYREXIA [None]
  - COUGH [None]
  - VIRAL INFECTION [None]
